FAERS Safety Report 5850712-8 (Version None)
Quarter: 2008Q3

REPORT INFORMATION
  Report Type: 
  Country: None (occurrence: None)
  Receive Date: 20080820
  Receipt Date: 20080818
  Transmission Date: 20090109
  Serious: Yes (Hospitalization)
  Sender: FDA-Public Use
  Company Number: IL-BRISTOL-MYERS SQUIBB COMPANY-14305692

PATIENT
  Age: 19 Year
  Sex: Male

DRUGS (2)
  1. WARFARIN SODIUM [Suspect]
     Indication: DEEP VEIN THROMBOSIS
     Dosage: LOADING DOSE OF 10MG; AFTER DISCHRAGE MAINTAINED WITH 12.5MG/DAY
  2. HEPARIN [Suspect]
     Indication: DEEP VEIN THROMBOSIS
     Route: 058

REACTIONS (3)
  - PRIAPISM [None]
  - PULMONARY EMBOLISM [None]
  - SKIN NECROSIS [None]
